FAERS Safety Report 5607859-0 (Version None)
Quarter: 2008Q1

REPORT INFORMATION
  Report Type: 
  Country: None (occurrence: None)
  Receive Date: 20080130
  Receipt Date: 20071211
  Transmission Date: 20080703
  Serious: Yes (Hospitalization, Other)
  Sender: FDA-Public Use
  Company Number: DE-BAYER-200718433GPV

PATIENT
  Age: 69 Year
  Sex: Male
  Weight: 100 kg

DRUGS (4)
  1. NEXAVAR [Suspect]
     Indication: HEPATIC NEOPLASM MALIGNANT
     Route: 048
     Dates: start: 20071002, end: 20071013
  2. NEXAVAR [Suspect]
     Route: 048
     Dates: start: 20071109
  3. CLOTRIMAZOLE [Concomitant]
     Indication: FUNGAL INFECTION
     Route: 061
  4. EPIPEVISONE [Concomitant]
     Indication: FUNGAL INFECTION
     Route: 061

REACTIONS (3)
  - BLISTER [None]
  - EPIDERMOLYSIS [None]
  - PALMAR-PLANTAR ERYTHRODYSAESTHESIA SYNDROME [None]
